FAERS Safety Report 7192239-X (Version None)
Quarter: 2010Q4

REPORT INFORMATION
  Report Type: 
  Country: None (occurrence: None)
  Receive Date: 20101223
  Receipt Date: 20101213
  Transmission Date: 20110411
  Serious: Yes (Life-Threatening)
  Sender: FDA-Public Use
  Company Number: GB-JNJFOC-20101205051

PATIENT
  Sex: Male
  Weight: 92.1 kg

DRUGS (4)
  1. REMICADE [Suspect]
     Indication: PSORIASIS
     Route: 042
  2. ATARAX [Concomitant]
  3. SIMVASTATIN [Concomitant]
  4. VITAMIN TAB [Concomitant]

REACTIONS (1)
  - MULTIPLE MYELOMA [None]
